FAERS Safety Report 9030834 (Version 4)
Quarter: 2013Q2

REPORT INFORMATION
  Report Type: Report from Study
  Country: JP (occurrence: JP)
  Receive Date: 20130123
  Receipt Date: 20130610
  Transmission Date: 20140414
  Serious: Yes (Other)
  Sender: FDA-Public Use
  Company Number: JP-ROCHE-1181720

PATIENT
  Age: 71 Year
  Sex: Male

DRUGS (3)
  1. LUCENTIS [Suspect]
     Indication: AGE-RELATED MACULAR DEGENERATION
     Route: 050
     Dates: start: 20110215
  2. CRAVIT [Concomitant]
     Route: 065
     Dates: start: 201102, end: 201206
  3. HYDREA [Concomitant]

REACTIONS (2)
  - Retinal exudates [Unknown]
  - Chorioretinal atrophy [Recovering/Resolving]
